FAERS Safety Report 16793511 (Version 1)
Quarter: 2019Q3

REPORT INFORMATION
  Report Type: Spontaneous
  Country: IT (occurrence: IT)
  Receive Date: 20190911
  Receipt Date: 20190911
  Transmission Date: 20191005
  Serious: Yes (Hospitalization)
  Sender: FDA-Public Use
  Company Number: IT-ALVOGEN-2019-ALVOGEN-101254

PATIENT
  Age: 88 Year
  Sex: Female

DRUGS (7)
  1. LASIX [Suspect]
     Active Substance: FUROSEMIDE
     Indication: ANURIA
     Dosage: 2.0DF ONCE/SINGLE ADMINISTRATION
     Route: 048
     Dates: start: 20190713, end: 20190715
  2. APONIL [Concomitant]
     Indication: PRODUCT USED FOR UNKNOWN INDICATION
     Route: 048
  3. SULFAMETHOXAZOLE/TRIMETHOPRIM [Concomitant]
     Indication: PRODUCT USED FOR UNKNOWN INDICATION
     Route: 048
  4. BIFRIL [Concomitant]
     Active Substance: ZOFENOPRIL
     Indication: PRODUCT USED FOR UNKNOWN INDICATION
     Route: 048
  5. TAVOR [Concomitant]
     Indication: PRODUCT USED FOR UNKNOWN INDICATION
     Route: 048
  6. CARDIOASPIRIN [Concomitant]
     Active Substance: ASPIRIN
     Indication: PRODUCT USED FOR UNKNOWN INDICATION
     Route: 048
  7. TENORETIC [Suspect]
     Active Substance: ATENOLOL\CHLORTHALIDONE
     Indication: HYPERTENSION
     Route: 048
     Dates: start: 20190101, end: 20190716

REACTIONS (4)
  - Renal failure [Recovering/Resolving]
  - Hypokalaemia [Recovering/Resolving]
  - Dehydration [Recovering/Resolving]
  - Hyponatraemia [Recovering/Resolving]

NARRATIVE: CASE EVENT DATE: 20190716
